FAERS Safety Report 5152125-3 (Version None)
Quarter: 2006Q4

REPORT INFORMATION
  Report Type: 
  Country: None (occurrence: None)
  Receive Date: 20061114
  Receipt Date: 20061114
  Transmission Date: 20070319
  Serious: Yes (Hospitalization)
  Sender: FDA-Public Use
  Company Number: None

PATIENT
  Age: 51 Year
  Sex: Male
  Weight: 65 kg

DRUGS (1)
  1. LEVOPHED [Suspect]
     Indication: BLOOD PRESSURE SYSTOLIC DECREASED
     Dosage: TITRATE IV DRIP
     Route: 041
     Dates: start: 20061110, end: 20061112

REACTIONS (3)
  - GRAFT COMPLICATION [None]
  - INFUSION SITE REACTION [None]
  - OEDEMA PERIPHERAL [None]
